FAERS Safety Report 25493978 (Version 4)
Quarter: 2025Q3

REPORT INFORMATION
  Report Type: Report from Study
  Country: US (occurrence: US)
  Receive Date: 20250630
  Receipt Date: 20250920
  Transmission Date: 20251020
  Serious: Yes (Hospitalization, Other)
  Sender: ABBVIE
  Company Number: US-ABBVIE-6308229

PATIENT
  Age: 78 Year
  Sex: Female

DRUGS (3)
  1. RINVOQ [Suspect]
     Active Substance: UPADACITINIB
     Indication: Rheumatoid arthritis
     Dosage: ER, FORM STRENGTH: 15 MG
     Route: 048
     Dates: start: 20250612
  2. RINVOQ [Suspect]
     Active Substance: UPADACITINIB
     Indication: Rheumatoid arthritis
     Dosage: ER, FORM STRENGTH: 15 MG
     Route: 048
     Dates: start: 20250314, end: 20250525
  3. RINVOQ [Suspect]
     Active Substance: UPADACITINIB
     Indication: Rheumatoid arthritis
     Route: 048

REACTIONS (6)
  - Humerus fracture [Recovering/Resolving]
  - Polymyalgia rheumatica [Not Recovered/Not Resolved]
  - Shoulder fracture [Recovering/Resolving]
  - Fall [Not Recovered/Not Resolved]
  - Rotator cuff syndrome [Recovering/Resolving]
  - Tenderness [Not Recovered/Not Resolved]

NARRATIVE: CASE EVENT DATE: 20250101
